FAERS Safety Report 16793641 (Version 1)
Quarter: 2019Q3

REPORT INFORMATION
  Report Type: Spontaneous
  Country: IN (occurrence: IN)
  Receive Date: 20190911
  Receipt Date: 20190911
  Transmission Date: 20191005
  Serious: Yes (Death, Other)
  Sender: FDA-Public Use
  Company Number: IN-AMGEN-INDSP2019144903

PATIENT
  Age: 46 Year
  Sex: Male

DRUGS (3)
  1. PACLITAXEL. [Concomitant]
     Active Substance: PACLITAXEL
     Indication: SQUAMOUS CELL CARCINOMA OF THE TONGUE
     Dosage: UNK UNK, QWK
  2. FILGRASTIM [Suspect]
     Active Substance: FILGRASTIM
     Indication: SQUAMOUS CELL CARCINOMA OF THE TONGUE
     Dosage: UNK UNK, QWK
     Route: 065
  3. 5-FLUOROURACIL [FLUOROURACIL] [Concomitant]
     Active Substance: FLUOROURACIL
     Indication: SQUAMOUS CELL CARCINOMA OF THE TONGUE
     Dosage: UNK UNK, QWK

REACTIONS (2)
  - Death [Fatal]
  - Metastatic squamous cell carcinoma [Unknown]
